FAERS Safety Report 5761123-8 (Version None)
Quarter: 2008Q2

REPORT INFORMATION
  Report Type: 
  Country: None (occurrence: None)
  Receive Date: 20080606
  Receipt Date: 20080530
  Transmission Date: 20081010
  Serious: Yes (Death)
  Sender: FDA-Public Use
  Company Number: IT-BAYER-200818820GPV

PATIENT
  Age: 64 Year
  Sex: Male

DRUGS (6)
  1. CIPROFLOXACIN HCL [Suspect]
     Indication: RESPIRATORY TRACT INFECTION
     Dosage: UNIT DOSE: 500 MG
     Route: 048
     Dates: start: 20071227, end: 20080102
  2. CLEXANE [Concomitant]
     Indication: DRUG USE FOR UNKNOWN INDICATION
     Route: 065
     Dates: end: 20080203
  3. AMPICILLIN [Concomitant]
     Indication: URINARY TRACT INFECTION
     Route: 065
     Dates: end: 20080126
  4. ROCEPHIN [Concomitant]
     Indication: URINARY TRACT INFECTION
     Route: 042
     Dates: start: 20080126, end: 20080203
  5. TENORMIN [Concomitant]
     Indication: HYPERTENSION
     Dosage: UNIT DOSE: 100 MG
     Route: 048
  6. NORVASC [Concomitant]
     Indication: HYPERTENSION
     Dosage: UNIT DOSE: 2.5 MG
     Route: 048

REACTIONS (5)
  - HEPATITIS ACUTE [None]
  - JAUNDICE [None]
  - MULTI-ORGAN FAILURE [None]
  - NEPHROGENIC ANAEMIA [None]
  - RENAL FAILURE ACUTE [None]
